FAERS Safety Report 5311674-5 (Version None)
Quarter: 2007Q2

REPORT INFORMATION
  Report Type: 
  Country: None (occurrence: None)
  Receive Date: 20070430
  Receipt Date: 20060811
  Transmission Date: 20071010
  Serious: No
  Sender: FDA-Public Use
  Company Number: 2006UW16077

PATIENT
  Sex: Female

DRUGS (4)
  1. ZOMIG-ZMT [Suspect]
     Route: 048
  2. ZOMIG [Suspect]
     Indication: MIGRAINE
     Route: 048
  3. DIOVAN [Concomitant]
  4. ZETIA [Concomitant]

REACTIONS (2)
  - DRUG DISPENSING ERROR [None]
  - NAUSEA [None]
